FAERS Safety Report 25397046 (Version 2)
Quarter: 2025Q2

REPORT INFORMATION
  Report Type: Spontaneous
  Country: ES (occurrence: ES)
  Receive Date: 20250604
  Receipt Date: 20250609
  Transmission Date: 20250717
  Serious: Yes (Other)
  Sender: MYLAN
  Company Number: None

PATIENT
  Age: 71 Year
  Sex: Female

DRUGS (20)
  1. METFORMIN [Interacting]
     Active Substance: METFORMIN HYDROCHLORIDE
     Indication: Diabetes mellitus
     Dosage: 1700 MILLIGRAM, QD
     Dates: start: 200912
  2. METFORMIN [Interacting]
     Active Substance: METFORMIN HYDROCHLORIDE
     Dosage: 1700 MILLIGRAM, QD
     Route: 048
     Dates: start: 200912
  3. METFORMIN [Interacting]
     Active Substance: METFORMIN HYDROCHLORIDE
     Dosage: 1700 MILLIGRAM, QD
     Route: 048
     Dates: start: 200912
  4. METFORMIN [Interacting]
     Active Substance: METFORMIN HYDROCHLORIDE
     Dosage: 1700 MILLIGRAM, QD
     Dates: start: 200912
  5. HYDROXYCHLOROQUINE SULFATE [Interacting]
     Active Substance: HYDROXYCHLOROQUINE SULFATE
     Indication: Lichen planus
     Dosage: 200 MILLIGRAM, QD
     Dates: start: 20250226
  6. HYDROXYCHLOROQUINE SULFATE [Interacting]
     Active Substance: HYDROXYCHLOROQUINE SULFATE
     Dosage: 200 MILLIGRAM, QD
     Route: 048
     Dates: start: 20250226
  7. HYDROXYCHLOROQUINE SULFATE [Interacting]
     Active Substance: HYDROXYCHLOROQUINE SULFATE
     Dosage: 200 MILLIGRAM, QD
     Route: 048
     Dates: start: 20250226
  8. HYDROXYCHLOROQUINE SULFATE [Interacting]
     Active Substance: HYDROXYCHLOROQUINE SULFATE
     Dosage: 200 MILLIGRAM, QD
     Dates: start: 20250226
  9. DAPAGLIFLOZIN [Interacting]
     Active Substance: DAPAGLIFLOZIN
     Indication: Diabetes mellitus
     Dosage: 10 MILLIGRAM, QD
     Dates: start: 202207
  10. DAPAGLIFLOZIN [Interacting]
     Active Substance: DAPAGLIFLOZIN
     Dosage: 10 MILLIGRAM, QD
     Route: 048
     Dates: start: 202207
  11. DAPAGLIFLOZIN [Interacting]
     Active Substance: DAPAGLIFLOZIN
     Dosage: 10 MILLIGRAM, QD
     Route: 048
     Dates: start: 202207
  12. DAPAGLIFLOZIN [Interacting]
     Active Substance: DAPAGLIFLOZIN
     Dosage: 10 MILLIGRAM, QD
     Dates: start: 202207
  13. INSULIN GLARGINE [Interacting]
     Active Substance: INSULIN GLARGINE
     Indication: Diabetes mellitus
     Dosage: 30 INTERNATIONAL UNIT, QD
     Dates: start: 202207
  14. INSULIN GLARGINE [Interacting]
     Active Substance: INSULIN GLARGINE
     Dosage: 30 INTERNATIONAL UNIT, QD
     Route: 058
     Dates: start: 202207
  15. INSULIN GLARGINE [Interacting]
     Active Substance: INSULIN GLARGINE
     Dosage: 30 INTERNATIONAL UNIT, QD
     Route: 058
     Dates: start: 202207
  16. INSULIN GLARGINE [Interacting]
     Active Substance: INSULIN GLARGINE
     Dosage: 30 INTERNATIONAL UNIT, QD
     Dates: start: 202207
  17. HUMALOG KWIKPEN [Interacting]
     Active Substance: INSULIN LISPRO
     Indication: Diabetes mellitus
     Dosage: 30 INTERNATIONAL UNIT, QD, 100 UNIT/ML
     Dates: start: 202207
  18. HUMALOG KWIKPEN [Interacting]
     Active Substance: INSULIN LISPRO
     Dosage: 30 INTERNATIONAL UNIT, QD, 100 UNIT/ML
     Route: 058
     Dates: start: 202207
  19. HUMALOG KWIKPEN [Interacting]
     Active Substance: INSULIN LISPRO
     Dosage: 30 INTERNATIONAL UNIT, QD, 100 UNIT/ML
     Route: 058
     Dates: start: 202207
  20. HUMALOG KWIKPEN [Interacting]
     Active Substance: INSULIN LISPRO
     Dosage: 30 INTERNATIONAL UNIT, QD, 100 UNIT/ML
     Dates: start: 202207

REACTIONS (2)
  - Hypoglycaemia [Recovered/Resolved]
  - Drug interaction [Unknown]

NARRATIVE: CASE EVENT DATE: 20250303
